FAERS Safety Report 7215730-6 (Version None)
Quarter: 2011Q1

REPORT INFORMATION
  Report Type: 
  Country: None (occurrence: None)
  Receive Date: 20110107
  Receipt Date: 20101228
  Transmission Date: 20110831
  Serious: Yes (Hospitalization, Other)
  Sender: FDA-Public Use
  Company Number: US-MYLANLABS-2010S1022476

PATIENT
  Age: 30 Year
  Sex: Male
  Weight: 140 kg

DRUGS (2)
  1. AMNESTEEM [Suspect]
     Indication: ACNE CYSTIC
     Route: 048
     Dates: start: 20100812, end: 20101128
  2. CLARAVIS [Suspect]
     Indication: ACNE CYSTIC
     Route: 048
     Dates: start: 20100801, end: 20100811

REACTIONS (3)
  - OESOPHAGITIS [None]
  - HAEMORRHAGE [None]
  - ANAEMIA [None]
